FAERS Safety Report 24238822 (Version 1)
Quarter: 2024Q3

REPORT INFORMATION
  Report Type: Spontaneous
  Country: IN (occurrence: IN)
  Receive Date: 20240822
  Receipt Date: 20240822
  Transmission Date: 20241017
  Serious: Yes (Death, Life-Threatening, Other)
  Sender: GLENMARK
  Company Number: IN-MLMSERVICE-20240805-PI152413-00306-1

PATIENT

DRUGS (10)
  1. TACROLIMUS [Suspect]
     Active Substance: TACROLIMUS
     Indication: Immunosuppressant drug therapy
     Dosage: UNK
     Route: 065
  2. MYCOPHENOLATE MOFETIL [Suspect]
     Active Substance: MYCOPHENOLATE MOFETIL
     Indication: Immunosuppressant drug therapy
     Dosage: UNK
     Route: 065
  3. PREDNISOLONE [Suspect]
     Active Substance: PREDNISOLONE
     Indication: Immunosuppressant drug therapy
     Dosage: UNK
     Route: 065
  4. METHYLPREDNISOLONE [Suspect]
     Active Substance: METHYLPREDNISOLONE
     Indication: Immunosuppressant drug therapy
     Dosage: 1000 MILLIGRAM (500 MG + 500 MG)
     Route: 065
  5. BASILIXIMAB [Suspect]
     Active Substance: BASILIXIMAB
     Indication: Immunosuppressant drug therapy
     Dosage: 20 MILLIGRAM (BACILIXIMAB-20 MG IN 50 ML NORMAL SALINE OVER 30 MIN)
     Route: 065
  6. SODIUM CHLORIDE [Concomitant]
     Active Substance: SODIUM CHLORIDE
     Indication: Immunosuppressant drug therapy
     Dosage: 50 MILLILITER (BACILIXIMAB-20 MG IN 50 ML NORMAL SALINE OVER 30 MIN)
     Route: 065
  7. MEROPENEM [Concomitant]
     Active Substance: MEROPENEM
     Indication: Prophylaxis
     Dosage: UNK
     Route: 065
  8. SEPTRAN [Concomitant]
     Indication: Prophylaxis
     Dosage: UNK
     Route: 065
  9. TARGOCID [Concomitant]
     Active Substance: TEICOPLANIN
     Indication: Prophylaxis
     Dosage: UNK
     Route: 065
  10. HUMAN IMMUNOGLOBULIN G [Concomitant]
     Active Substance: HUMAN IMMUNOGLOBULIN G
     Indication: Transplant rejection
     Dosage: 100 MILLIGRAM PER KILOGRAM
     Route: 042

REACTIONS (11)
  - Pericardial effusion [Fatal]
  - Cardiomegaly [Fatal]
  - Congestive hepatopathy [Fatal]
  - Pulmonary artery thrombosis [Fatal]
  - Aortic aneurysm rupture [Fatal]
  - Circulatory collapse [Fatal]
  - Spleen congestion [Fatal]
  - Respiratory tract infection fungal [Fatal]
  - Infective aneurysm [Fatal]
  - Bacterial infection [Fatal]
  - Aspergillus infection [Fatal]
